FAERS Safety Report 4877087-5 (Version None)
Quarter: 2005Q4

REPORT INFORMATION
  Report Type: 
  Country: None (occurrence: None)
  Receive Date: 20051206
  Receipt Date: 20050822
  Transmission Date: 20060501
  Serious: No
  Sender: FDA-Public Use
  Company Number: USA0508106084

PATIENT
  Age: 50 Year
  Sex: Female
  Weight: 63 kg

DRUGS (10)
  1. CYMBALTA [Suspect]
     Indication: ANXIETY DISORDER
     Dosage: 60 MG
     Dates: start: 20050501
  2. STRATTERA [Suspect]
     Indication: ATTENTION DEFICIT/HYPERACTIVITY DISORDER
     Dosage: 80 MG AT BEDTIME
     Dates: start: 20050818
  3. SYNTHROID [Concomitant]
  4. ALLEGRA [Concomitant]
  5. ACTONEL [Concomitant]
  6. PREMPHASE 14/14 [Concomitant]
  7. CALCIUM GLUCONATE [Concomitant]
  8. VITAMINS [Concomitant]
  9. LEXAPRO [Concomitant]
  10. EFFEXOR [Concomitant]

REACTIONS (3)
  - ABNORMAL DREAMS [None]
  - EARLY MORNING AWAKENING [None]
  - SLEEP DISORDER [None]
